FAERS Safety Report 22394524 (Version 1)
Quarter: 2023Q2

REPORT INFORMATION
  Report Type: Spontaneous
  Country: US (occurrence: None)
  Receive Date: 20230531
  Receipt Date: 20230531
  Transmission Date: 20230722
  Serious: Yes (Other)
  Sender: FDA-Public Use
  Company Number: None

PATIENT
  Age: 64 Year
  Sex: Female
  Weight: 97.1 kg

DRUGS (1)
  1. FERRIC DERISOMALTOSE [Suspect]
     Active Substance: FERRIC DERISOMALTOSE
     Dosage: OTHER FREQUENCY : ONCE;?
     Route: 042
     Dates: start: 20230517

REACTIONS (6)
  - Infusion related reaction [None]
  - Flushing [None]
  - Feeling hot [None]
  - Arthralgia [None]
  - Headache [None]
  - Throat irritation [None]

NARRATIVE: CASE EVENT DATE: 20230517
